FAERS Safety Report 6241569-4 (Version None)
Quarter: 2009Q2

REPORT INFORMATION
  Report Type: 
  Country: None (occurrence: None)
  Receive Date: 20090623
  Receipt Date: 20031107
  Transmission Date: 20091009
  Serious: Yes (Hospitalization, Other)
  Sender: FDA-Public Use
  Company Number: DE-ROCHE-342577

PATIENT
  Sex: Male

DRUGS (74)
  1. MYCOPHENOLATE MOFETIL [Suspect]
     Dosage: DRUG: MYCOPHENOLATMOFETIL
     Route: 048
     Dates: start: 20030628, end: 20030703
  2. MYCOPHENOLATE MOFETIL [Suspect]
     Dosage: ROUTE: PL
     Route: 048
     Dates: start: 20030704
  3. MYCOPHENOLATE MOFETIL [Suspect]
     Route: 048
     Dates: end: 20040217
  4. MYCOPHENOLATE MOFETIL [Suspect]
     Route: 048
     Dates: start: 20040402, end: 20041201
  5. MYCOPHENOLATE MOFETIL [Suspect]
     Dosage: DRUG: MYCOPHENOLAT MOFETIL
     Route: 048
     Dates: start: 20030714
  6. MYCOPHENOLATE MOFETIL [Suspect]
     Route: 048
     Dates: start: 20030716
  7. DACLIZUMAB [Suspect]
     Route: 042
     Dates: start: 20030628, end: 20030628
  8. DACLIZUMAB [Suspect]
     Dosage: WEEK-2 VISIT
     Route: 042
     Dates: start: 20030711
  9. DACLIZUMAB [Suspect]
     Dosage: WEEK-4 VISIT
     Route: 042
     Dates: start: 20030725
  10. DACLIZUMAB [Suspect]
     Route: 042
     Dates: start: 20030808, end: 20030825
  11. CYCLOSPORINE [Suspect]
     Dosage: DRUG: CICLOSPORINE
     Route: 048
     Dates: start: 20030628, end: 20030629
  12. CYCLOSPORINE [Suspect]
     Route: 048
     Dates: start: 20030630, end: 20030630
  13. CYCLOSPORINE [Suspect]
     Route: 048
     Dates: start: 20030701, end: 20030711
  14. CYCLOSPORINE [Suspect]
     Route: 048
     Dates: start: 20030712, end: 20030715
  15. CYCLOSPORINE [Suspect]
     Route: 048
     Dates: start: 20030716, end: 20030716
  16. CYCLOSPORINE [Suspect]
     Route: 048
     Dates: start: 20030717, end: 20030717
  17. CYCLOSPORINE [Suspect]
     Route: 048
     Dates: start: 20030718, end: 20030722
  18. CYCLOSPORINE [Suspect]
     Route: 048
     Dates: start: 20030723, end: 20030804
  19. CYCLOSPORINE [Suspect]
     Route: 048
     Dates: start: 20030805, end: 20030818
  20. CYCLOSPORINE [Suspect]
     Route: 048
     Dates: start: 20030819, end: 20030819
  21. CYCLOSPORINE [Suspect]
     Route: 048
     Dates: start: 20030919, end: 20030929
  22. CYCLOSPORINE [Suspect]
     Route: 048
     Dates: start: 20030930, end: 20040203
  23. CYCLOSPORINE [Suspect]
     Dosage: DRUG: CICLOSPORINE; DOSAGE CAPTURED IN MG AS 70 GRAM BEING A VERY HIGH DOSE SEEMS TO BE A TYPO
     Route: 048
     Dates: start: 20030204
  24. CYCLOSPORINE [Suspect]
     Route: 048
     Dates: start: 20030819
  25. CYCLOSPORINE [Suspect]
     Route: 048
     Dates: start: 20040204
  26. CYCLOSPORINE [Suspect]
     Route: 048
     Dates: start: 20041201
  27. PREDNISOLONE [Suspect]
     Dosage: FORM: VIAL
     Route: 042
     Dates: start: 20030628, end: 20030630
  28. PREDNISOLONE [Suspect]
     Route: 042
     Dates: start: 20030703, end: 20030706
  29. PREDNISOLONE [Suspect]
     Dosage: FORM: VIAL
     Route: 042
     Dates: start: 20030729, end: 20030729
  30. PREDNISOLONE [Suspect]
     Route: 048
     Dates: start: 20030629, end: 20030629
  31. PREDNISOLONE [Suspect]
     Route: 048
     Dates: start: 20030630
  32. PREDNISOLONE [Suspect]
     Route: 048
     Dates: start: 20030703
  33. PREDNISOLONE [Suspect]
     Route: 048
     Dates: start: 20030706, end: 20030708
  34. PREDNISOLONE [Suspect]
     Route: 048
     Dates: start: 20030709, end: 20030711
  35. PREDNISOLONE [Suspect]
     Route: 048
     Dates: start: 20030712, end: 20030714
  36. PREDNISOLONE [Suspect]
     Route: 048
     Dates: start: 20030715, end: 20030721
  37. PREDNISOLONE [Suspect]
     Route: 048
     Dates: start: 20030722, end: 20030728
  38. PREDNISOLONE [Suspect]
     Route: 048
     Dates: start: 20030730, end: 20030805
  39. PREDNISOLONE [Suspect]
     Route: 048
     Dates: start: 20030806, end: 20030904
  40. PREDNISOLONE [Suspect]
     Route: 048
     Dates: start: 20030905, end: 20031002
  41. PREDNISOLONE [Suspect]
     Route: 048
     Dates: start: 20031003, end: 20031030
  42. PREDNISOLONE [Suspect]
     Route: 048
     Dates: start: 20031031, end: 20031127
  43. PREDNISOLONE [Suspect]
     Route: 048
     Dates: start: 20031128, end: 20031225
  44. PREDNISOLONE [Suspect]
     Route: 048
     Dates: start: 20031226
  45. PANTOZOL [Concomitant]
     Route: 048
  46. ACTONEL [Concomitant]
     Route: 048
     Dates: start: 20030629, end: 20030724
  47. ACTONEL [Concomitant]
     Route: 048
     Dates: start: 20030808, end: 20040219
  48. AMPICILLIN AND SULBACTAM [Concomitant]
     Route: 048
     Dates: start: 20030629, end: 20030824
  49. AMPHOTERICIN B [Concomitant]
     Dosage: FORM: REPORTED AS PIP.
     Route: 048
     Dates: start: 20030629
  50. BELOC-ZOK [Concomitant]
     Route: 048
     Dates: start: 20030629, end: 20030810
  51. CALCET [Concomitant]
     Route: 048
     Dates: end: 20030717
  52. ANTI-PHOSPHAT [Concomitant]
     Route: 048
     Dates: end: 20030721
  53. BAYOTENSIN [Concomitant]
     Route: 048
     Dates: end: 20030124
  54. CYMEVEN [Concomitant]
     Route: 048
     Dates: start: 20030704, end: 20030930
  55. ALNA [Concomitant]
     Route: 048
     Dates: start: 20030717
  56. UNAT [Concomitant]
     Route: 048
     Dates: start: 20030717, end: 20030725
  57. ROCALTROL [Concomitant]
     Route: 048
  58. CA BRAUSE [Concomitant]
  59. PENTACARINAT [Concomitant]
     Route: 055
     Dates: start: 20030710, end: 20030711
  60. KEPINOL FORTE [Concomitant]
     Route: 048
     Dates: start: 20030811, end: 20040201
  61. NORVASC [Concomitant]
     Route: 048
  62. LASIX [Concomitant]
     Route: 048
  63. METOPROLOL SUCCINATE [Concomitant]
     Route: 048
     Dates: start: 20030811
  64. ALGELDRAT [Concomitant]
     Route: 048
     Dates: start: 20030703, end: 20030804
  65. AMPHOTERICIN B [Concomitant]
     Dosage: ROUTE: TO
     Route: 050
     Dates: start: 20030629, end: 20030911
  66. AMLODIPINE [Concomitant]
     Route: 048
     Dates: start: 20030704
  67. NITRENDIPIN [Concomitant]
     Route: 048
     Dates: start: 20030701, end: 20030725
  68. THYMOGLOBULIN [Concomitant]
     Dosage: FORM: VIAL
     Route: 042
     Dates: start: 20030703, end: 20030710
  69. ACYCLOVIR [Concomitant]
     Route: 042
     Dates: start: 20040217, end: 20040304
  70. ALENDRONSAEURE [Concomitant]
     Route: 048
     Dates: start: 20040222
  71. FUROSEMID [Concomitant]
     Route: 048
     Dates: start: 20030819
  72. ACYCLOVIR [Concomitant]
     Route: 048
     Dates: start: 20040304, end: 20040324
  73. MYFORTIC [Suspect]
     Route: 048
     Dates: start: 20051201
  74. AMPICILLIN AND SULBACTAM [Concomitant]
     Dosage: FORM: VIAL
     Route: 042
     Dates: start: 20030628, end: 20030628

REACTIONS (6)
  - CHOLELITHIASIS [None]
  - CHOLESTASIS [None]
  - CHRONIC ALLOGRAFT NEPHROPATHY [None]
  - HERPES ZOSTER [None]
  - POST PROCEDURAL URINE LEAK [None]
  - THERAPEUTIC AGENT TOXICITY [None]
